FAERS Safety Report 10162024 (Version 2)
Quarter: 2014Q2

REPORT INFORMATION
  Report Type: Spontaneous
  Country: LB (occurrence: LB)
  Receive Date: 20140509
  Receipt Date: 20140509
  Transmission Date: 20141212
  Serious: Yes (Other)
  Sender: FDA-Public Use
  Company Number: LB-JNJFOC-20140310895

PATIENT
  Age: 12 Year
  Sex: Male
  Weight: 80 kg

DRUGS (4)
  1. REMICADE [Suspect]
     Indication: CROHN^S DISEASE
     Dosage: FOR 1 YEAR
     Route: 042
     Dates: start: 201211, end: 201403
  2. HYDROCORTISONE [Concomitant]
     Indication: PREMEDICATION
     Route: 042
  3. ATARAX [Concomitant]
     Indication: PREMEDICATION
     Dosage: ^1YR^
     Route: 065
  4. PENTASA [Concomitant]
     Indication: CROHN^S DISEASE
     Dosage: APPROXIMATELY 3 YEARS
     Route: 065

REACTIONS (10)
  - Laryngeal oedema [Recovered/Resolved]
  - Infusion related reaction [Recovered/Resolved]
  - Tachycardia [Recovered/Resolved]
  - Flushing [Recovered/Resolved]
  - Dyspnoea [Recovered/Resolved]
  - Rash [Recovered/Resolved]
  - Face oedema [Recovered/Resolved]
  - Chest pain [Recovered/Resolved]
  - Palpitations [Recovered/Resolved]
  - Headache [Recovered/Resolved]
